FAERS Safety Report 12977341 (Version 2)
Quarter: 2017Q2

REPORT INFORMATION
  Report Type: Spontaneous
  Country: US (occurrence: US)
  Receive Date: 20161128
  Receipt Date: 20170516
  Transmission Date: 20170830
  Serious: No
  Sender: FDA-Public Use
  Company Number: US-BRISTOL-MYERS SQUIBB COMPANY-BMS-2016-099989

PATIENT
  Age: 60 Year
  Sex: Female

DRUGS (1)
  1. ABILIFY [Suspect]
     Active Substance: ARIPIPRAZOLE
     Indication: BIPOLAR DISORDER
     Dosage: 1 DF, UNK
     Route: 065
     Dates: start: 20040903, end: 201511

REACTIONS (5)
  - Compulsive sexual behaviour [Recovered/Resolved]
  - Gambling [Recovered/Resolved]
  - Prescribed underdose [Unknown]
  - Obsessive-compulsive disorder [Recovered/Resolved]
  - Alcoholism [Unknown]

NARRATIVE: CASE EVENT DATE: 20140422
